FAERS Safety Report 13459406 (Version 3)
Quarter: 2017Q3

REPORT INFORMATION
  Report Type: Report from Study
  Country: IE (occurrence: IE)
  Receive Date: 20170419
  Receipt Date: 20170714
  Transmission Date: 20171127
  Serious: Yes (Hospitalization)
  Sender: FDA-Public Use
  Company Number: IE-ACTELION-A-US2017-152763

PATIENT
  Age: 17 Year
  Sex: Female

DRUGS (1)
  1. VENTAVIS [Suspect]
     Active Substance: ILOPROST
     Indication: PULMONARY ARTERIAL HYPERTENSION
     Dosage: 5 MCG/ML, 6ID
     Route: 065
     Dates: start: 20160610

REACTIONS (5)
  - Migraine [Recovered/Resolved]
  - Dizziness [Unknown]
  - Drug administered to patient of inappropriate age [Unknown]
  - Flushing [Unknown]
  - Off label use [Unknown]

NARRATIVE: CASE EVENT DATE: 20160615
